FAERS Safety Report 22379099 (Version 1)
Quarter: 2023Q2

REPORT INFORMATION
  Report Type: Spontaneous
  Country: US (occurrence: US)
  Receive Date: 20230529
  Receipt Date: 20230529
  Transmission Date: 20230721
  Serious: No
  Sender: FDA-Public Use
  Company Number: US-GALDERMA-US2023007202

PATIENT

DRUGS (14)
  1. PROACTIV MD ADAPALENE ACNE TREATMENT [Suspect]
     Active Substance: ADAPALENE
     Indication: Acne
     Dosage: 1 DOSAGE FORM, APPLIED ON FACE, 3 TO 5 TIMES PER WEEK
     Route: 061
     Dates: start: 202212
  2. PROACTIV MD ADAPALENE ACNE TREATMENT [Suspect]
     Active Substance: ADAPALENE
     Indication: Seborrhoea
  3. Proactiv MD Ultra Gentle Cleanser [Concomitant]
     Indication: Acne
     Dosage: 1 DOSAGE FORM, APPLIED ON FACE, 3 TO 5 TIMES PER WEEK
     Route: 061
     Dates: start: 202212
  4. Proactiv MD Ultra Gentle Cleanser [Concomitant]
     Indication: Seborrhoea
  5. Proactiv MD Ultra Hydrating Moisturizer [Concomitant]
     Indication: Acne
     Dosage: 1 DOSAGE FORM, APPLIED ON FACE, 3 TO 5 TIMES PER WEEK
     Route: 061
     Dates: start: 202212
  6. Proactiv MD Ultra Hydrating Moisturizer [Concomitant]
     Indication: Seborrhoea
  7. Proactiv Post Acne Dark Mark Relief [Concomitant]
     Indication: Acne
     Dosage: 1 DOSAGE FORM, APPLIED ON FACE, 3 TO 5 TIMES PER WEEK
     Route: 061
     Dates: start: 202212
  8. Proactiv Post Acne Dark Mark Relief [Concomitant]
     Indication: Seborrhoea
  9. PROACTIV ACNE BODY WASH [Concomitant]
     Active Substance: SALICYLIC ACID
     Indication: Acne
     Dosage: 1 DOSAGE FORM, APPLIED ON FACE, 3 TO 5 TIMES PER WEEK
     Route: 061
     Dates: start: 202212
  10. PROACTIV ACNE BODY WASH [Concomitant]
     Active Substance: SALICYLIC ACID
     Indication: Seborrhoea
  11. Proactiv Post Acne Scar Gel [Concomitant]
     Indication: Acne
     Dosage: 1 DOSAGE FORM, APPLIED ON FACE, 3 TO 5 TIMES PER WEEK
     Route: 061
     Dates: start: 202212
  12. Proactiv Post Acne Scar Gel [Concomitant]
     Indication: Seborrhoea
  13. PROACTIV BLACKHEAD DISSOLVING [Concomitant]
     Active Substance: SALICYLIC ACID
     Indication: Acne
     Dosage: 1 DOSAGE FORM, APPLIED ON FACE, 3 TO 5 TIMES PER WEEK
     Route: 061
     Dates: start: 202212
  14. PROACTIV BLACKHEAD DISSOLVING [Concomitant]
     Active Substance: SALICYLIC ACID
     Indication: Seborrhoea

REACTIONS (3)
  - Drug ineffective [Unknown]
  - Underdose [Recovered/Resolved]
  - Inappropriate schedule of product administration [Recovered/Resolved]
